FAERS Safety Report 10441077 (Version 1)
Quarter: 2014Q3

REPORT INFORMATION
  Report Type: Spontaneous
  Country: US (occurrence: None)
  Receive Date: 20140908
  Receipt Date: 20140908
  Transmission Date: 20150326
  Serious: Yes (Other)
  Sender: FDA-Public Use
  Company Number: None

PATIENT
  Age: 37 Year
  Sex: Female
  Weight: 117 kg

DRUGS (3)
  1. LEVULAN KERASTICK [Suspect]
     Active Substance: AMINOLEVULINIC ACID HYDROCHLORIDE
     Indication: ACTINIC KERATOSIS
  2. MVI [Concomitant]
     Active Substance: VITAMINS
  3. LO/OVRAL [Concomitant]
     Active Substance: ETHINYL ESTRADIOL\NORGESTREL

REACTIONS (5)
  - Blister [None]
  - Erythema [None]
  - Pruritus [None]
  - Incorrect drug administration duration [None]
  - Skin burning sensation [None]

NARRATIVE: CASE EVENT DATE: 20140904
